FAERS Safety Report 11105177 (Version 1)
Quarter: 2015Q2

REPORT INFORMATION
  Report Type: Report from Study
  Country: TH (occurrence: TH)
  Receive Date: 20150511
  Receipt Date: 20150511
  Transmission Date: 20150821
  Serious: Yes (Other)
  Sender: FDA-Public Use
  Company Number: PHHY2014TH105952

PATIENT
  Age: 65 Year
  Sex: Female

DRUGS (2)
  1. GLIVEC [Suspect]
     Active Substance: IMATINIB MESYLATE
     Indication: GASTROINTESTINAL STROMAL TUMOUR
     Dosage: 400 MG
     Route: 065
  2. GLIVEC [Suspect]
     Active Substance: IMATINIB MESYLATE
     Dosage: 600 MG, QD
     Route: 065

REACTIONS (5)
  - Malignant neoplasm progression [Unknown]
  - No therapeutic response [Unknown]
  - Gastrointestinal stromal tumour [Unknown]
  - Nodule [Unknown]
  - Hepatic mass [Unknown]

NARRATIVE: CASE EVENT DATE: 20140821
